FAERS Safety Report 8761912 (Version 1)
Quarter: 2012Q4

REPORT INFORMATION
  Report Type: 
  Country: ES (occurrence: ES)
  Receive Date: 20120830
  Receipt Date: 20120830
  Transmission Date: 20130627
  Serious: Yes (Other)
  Sender: FDA-Public Use
  Company Number: ES-MERCK-1208ESP012007

PATIENT

DRUGS (4)
  1. CANCIDAS [Suspect]
     Indication: FEBRILE NEUTROPENIA
     Route: 042
     Dates: start: 20120331, end: 20120401
  2. CANCIDAS [Suspect]
     Route: 042
     Dates: start: 20120331, end: 20120401
  3. CANCIDAS [Concomitant]
     Indication: FEBRILE NEUTROPENIA
     Route: 042
     Dates: start: 20120330, end: 20120330
  4. CANCIDAS [Concomitant]
     Route: 042
     Dates: start: 20120330, end: 20120330

REACTIONS (3)
  - Mucosal inflammation [Not Recovered/Not Resolved]
  - Lip oedema [Not Recovered/Not Resolved]
  - Rash [Not Recovered/Not Resolved]
